FAERS Safety Report 6870988-8 (Version None)
Quarter: 2010Q3

REPORT INFORMATION
  Report Type: 
  Country: None (occurrence: None)
  Receive Date: 20100723
  Receipt Date: 20100719
  Transmission Date: 20110219
  Serious: Yes (Other)
  Sender: FDA-Public Use
  Company Number: ES-ABBOTT-09P-144-0605736-00

PATIENT
  Age: 40 Year

DRUGS (3)
  1. SIBUTRAMINE HYDROCHLORIDE MONOHYDRATE [Suspect]
     Indication: DRUG EXPOSURE DURING PREGNANCY
     Route: 064
     Dates: start: 20090507, end: 20091027
  2. LEXATIN [Concomitant]
     Indication: ANXIETY
  3. BEKUNIS [Concomitant]
     Indication: CONSTIPATION

REACTIONS (1)
  - ABORTION INDUCED [None]
